FAERS Safety Report 18670216 (Version 2)
Quarter: 2021Q2

REPORT INFORMATION
  Report Type: Spontaneous
  Country: US (occurrence: US)
  Receive Date: 20201228
  Receipt Date: 20210614
  Transmission Date: 20210717
  Serious: No
  Sender: FDA-Public Use
  Company Number: US-SA-2020SA128964

PATIENT
  Age: 14 Year
  Sex: Female

DRUGS (9)
  1. CLOBETASOL 17 PROP [Concomitant]
     Active Substance: CLOBETASOL PROPIONATE
  2. DESONIDE. [Concomitant]
     Active Substance: DESONIDE
  3. ASMANEX HFA [Suspect]
     Active Substance: MOMETASONE FUROATE
  4. MUPIROCIN. [Concomitant]
     Active Substance: MUPIROCIN
  5. DUPIXENT [Suspect]
     Active Substance: DUPILUMAB
     Indication: ASTHMA
     Dosage: 200 MG
     Route: 058
  6. CLARITIN [Concomitant]
     Active Substance: LORATADINE
  7. DUPIXENT [Suspect]
     Active Substance: DUPILUMAB
     Indication: DERMATITIS ATOPIC
     Dosage: 400 MG, 1X
     Route: 058
  8. DUPIXENT [Suspect]
     Active Substance: DUPILUMAB
     Indication: ECZEMA
  9. TRIAMCINOLONE [Concomitant]
     Active Substance: TRIAMCINOLONE

REACTIONS (4)
  - Skin atrophy [Not Recovered/Not Resolved]
  - Inappropriate schedule of product administration [Unknown]
  - Rash [Not Recovered/Not Resolved]
  - Erythema [Not Recovered/Not Resolved]

NARRATIVE: CASE EVENT DATE: 20201221
